FAERS Safety Report 5924954-7 (Version None)
Quarter: 2008Q3

REPORT INFORMATION
  Report Type: 
  Country: None (occurrence: None)
  Receive Date: 20080909
  Receipt Date: 20080229
  Transmission Date: 20090109
  Serious: Yes (Death, Hospitalization)
  Sender: FDA-Public Use
  Company Number: 163-20785-08021749

PATIENT
  Age: 62 Year
  Sex: Female
  Weight: 42.27 kg

DRUGS (1)
  1. THALOMID [Suspect]
     Indication: UTERINE CANCER
     Dosage: 200 MG, QHS, ORAL
     Route: 048
     Dates: start: 20080109, end: 20080110

REACTIONS (4)
  - DISEASE PROGRESSION [None]
  - HAEMATURIA [None]
  - NAUSEA [None]
  - VOMITING [None]
